FAERS Safety Report 8807174 (Version 1)
Quarter: 2012Q4

REPORT INFORMATION
  Report Type: 
  Country: ES (occurrence: ES)
  Receive Date: 20120925
  Receipt Date: 20120925
  Transmission Date: 20130627
  Serious: Yes (Hospitalization, Other)
  Sender: FDA-Public Use
  Company Number: ES-PFIZER INC-2012235735

PATIENT
  Age: 44 Year
  Sex: Male

DRUGS (6)
  1. CARVEDILOL [Suspect]
     Indication: HYPERTENSION
     Dosage: 6.5 mg, 2x/day
     Route: 048
     Dates: start: 20120115
  2. CARDURAN NEO [Interacting]
     Indication: HYPERTENSION
     Dosage: 4 mg, 1x/day
     Route: 048
     Dates: start: 20120115
  3. ENALAPRIL [Interacting]
     Indication: HYPERTENSION
     Dosage: 20 mg, 1x/day
     Route: 048
     Dates: start: 20120116
  4. TACROLIMUS [Interacting]
     Indication: RENAL TRANSPLANT
     Dosage: 9 mg, 1x/day
     Route: 048
     Dates: start: 20120110, end: 20120121
  5. KARVEA [Interacting]
     Indication: HYPERTENSION
     Dosage: 75 mg, 2x/day
     Route: 048
     Dates: start: 20120116
  6. SULFAMETHOXAZOLE AND TRIMETHOPRIM DS [Interacting]
     Indication: PROPHYLAXIS
     Dosage: 1 DF, 3x/week
     Route: 048
     Dates: start: 20120116, end: 20120121

REACTIONS (5)
  - Drug interaction [Recovered/Resolved]
  - Hyperkalaemia [Recovered/Resolved]
  - Hypomagnesaemia [Recovered/Resolved]
  - Asthenia [Recovered/Resolved]
  - Paraesthesia [Recovered/Resolved]
